FAERS Safety Report 5914145-8 (Version None)
Quarter: 2008Q3

REPORT INFORMATION
  Report Type: 
  Country: None (occurrence: None)
  Receive Date: 20080909
  Receipt Date: 20080115
  Transmission Date: 20090109
  Serious: Yes (Hospitalization, Other)
  Sender: FDA-Public Use
  Company Number: 163-20785-08010853

PATIENT
  Age: 65 Year
  Sex: Female

DRUGS (2)
  1. THALOMID [Suspect]
     Indication: MULTIPLE MYELOMA
     Dosage: 200 MG, 1 IN 1 D, ORAL; 100 MG, 1 IN 1 D, ORAL
     Route: 048
     Dates: start: 20070601, end: 20071101
  2. THALOMID [Suspect]
     Indication: MULTIPLE MYELOMA
     Dosage: 200 MG, 1 IN 1 D, ORAL; 100 MG, 1 IN 1 D, ORAL
     Route: 048
     Dates: start: 20071217, end: 20071201

REACTIONS (3)
  - ASTHENIA [None]
  - FALL [None]
  - VAGINAL HAEMORRHAGE [None]
